FAERS Safety Report 11772412 (Version 1)
Quarter: 2015Q4

REPORT INFORMATION
  Report Type: Spontaneous
  Country: US (occurrence: None)
  Receive Date: 20151123
  Receipt Date: 20151123
  Transmission Date: 20160304
  Serious: No
  Sender: FDA-Public Use
  Company Number: 15AE055

PATIENT
  Age: 82 Year
  Sex: Female

DRUGS (1)
  1. EQUATE IBUPROFEN [Suspect]
     Active Substance: IBUPROFEN
     Indication: ANALGESIC THERAPY
     Dosage: 6 TABLETS PER DAY?
     Dates: start: 20151108, end: 20151110

REACTIONS (1)
  - Constipation [None]

NARRATIVE: CASE EVENT DATE: 20151111
